FAERS Safety Report 8613539-X (Version None)
Quarter: 2012Q3

REPORT INFORMATION
  Report Type: 
  Country: None (occurrence: None)
  Receive Date: 20120823
  Receipt Date: 20120816
  Transmission Date: 20120928
  Serious: Yes (Other)
  Sender: FDA-Public Use
  Company Number: US-AMGEN-USASP2012050590

PATIENT
  Age: 47 Year
  Sex: Male
  Weight: 71.202 kg

DRUGS (11)
  1. EMEND [Concomitant]
     Indication: NAUSEA
     Dosage: 150 MG, Q2WK
     Route: 042
     Dates: start: 20120509, end: 20120810
  2. EMEND [Concomitant]
     Indication: VOMITING
  3. PRAVASTATIN [Concomitant]
     Dosage: 40 MG, QD
  4. VECTIBIX [Suspect]
     Indication: COLORECTAL CANCER METASTATIC
     Dosage: 400 MG, Q2WK
     Route: 042
     Dates: start: 20120614, end: 20120810
  5. LEUKOVORIN [Concomitant]
     Indication: COLON CANCER
     Dosage: 760 MG, Q2WK
     Route: 042
     Dates: start: 20120509, end: 20120810
  6. FLUOROURACIL [Concomitant]
     Dosage: 456 MG, Q2WK
     Dates: start: 20120509, end: 20120810
  7. FLUOROURACIL [Concomitant]
     Indication: COLON CANCER
     Dosage: 760 MG, Q2WK
     Dates: start: 20120509, end: 20120810
  8. LISINOPRIL [Concomitant]
     Dosage: 5 G, QD
  9. DEXAMETHASONE [Concomitant]
     Dosage: 4 G, BID
  10. LEXAPRO [Concomitant]
     Dosage: 20 MG, QD
  11. CAMPTOSAR [Concomitant]
     Indication: COLON CANCER
     Dosage: 340 MG, Q2WK
     Route: 042
     Dates: start: 20120509, end: 20120810

REACTIONS (2)
  - CRYING [None]
  - EMOTIONAL DISTRESS [None]
